FAERS Safety Report 10870684 (Version 1)
Quarter: 2015Q1

REPORT INFORMATION
  Report Type: Spontaneous
  Country: US (occurrence: US)
  Receive Date: 20150226
  Receipt Date: 20150226
  Transmission Date: 20150721
  Serious: No
  Sender: FDA-Public Use
  Company Number: US-TEVA-504500USA

PATIENT
  Age: 28 Year
  Sex: Male

DRUGS (1)
  1. AMPHETAMINE W/DEXTROAMPHETAMINE [Suspect]
     Active Substance: AMPHETAMINE SULFATE\DEXTROAMPHETAMINE
     Indication: ATTENTION DEFICIT/HYPERACTIVITY DISORDER
     Route: 065
     Dates: start: 20140815

REACTIONS (8)
  - Sleep disorder [Unknown]
  - Vitamin C deficiency [Unknown]
  - Drug ineffective [Unknown]
  - Attention deficit/hyperactivity disorder [Unknown]
  - Product substitution issue [Unknown]
  - Headache [Unknown]
  - Incorrect dose administered [Unknown]
  - Disturbance in attention [Unknown]

NARRATIVE: CASE EVENT DATE: 20140815
